FAERS Safety Report 17582429 (Version 1)
Quarter: 2020Q1

REPORT INFORMATION
  Report Type: Spontaneous
  Country: ES (occurrence: ES)
  Receive Date: 20200325
  Receipt Date: 20200325
  Transmission Date: 20200409
  Serious: Yes (Death, Other)
  Sender: FDA-Public Use
  Company Number: ES-PFIZER INC-2020125504

PATIENT
  Age: 55 Year
  Sex: Male
  Weight: 124 kg

DRUGS (1)
  1. DOXORUBICIN HCL [Suspect]
     Active Substance: DOXORUBICIN HYDROCHLORIDE
     Indication: HEPATOCELLULAR CARCINOMA
     Dosage: 100 MG, SINGLE (CHEMIOEMBOLIZATION WITH 100MG)
     Route: 013
     Dates: start: 20200304, end: 20200304

REACTIONS (3)
  - Hepatitis [Fatal]
  - Post embolisation syndrome [Fatal]
  - Acute hepatic failure [Fatal]

NARRATIVE: CASE EVENT DATE: 20200305
